FAERS Safety Report 9204721 (Version 1)
Quarter: 2013Q2

REPORT INFORMATION
  Report Type: Spontaneous
  Country: GB (occurrence: GB)
  Receive Date: 20130402
  Receipt Date: 20130402
  Transmission Date: 20140414
  Serious: Yes (Other)
  Sender: FDA-Public Use
  Company Number: GB-UCBSA-081656

PATIENT
  Age: 53 Year
  Sex: 0
  Weight: 72.5 kg

DRUGS (4)
  1. CIMZIA [Suspect]
     Indication: RHEUMATOID ARTHRITIS
     Route: 058
     Dates: start: 20130308, end: 20130308
  2. FOLIC ACID [Concomitant]
     Dosage: UNKNOWN DOSE
  3. METHOTREXATE [Concomitant]
     Dosage: UNKNOWN DOSE
  4. NAPROXEN [Concomitant]
     Dosage: UNKNOWN DOSE

REACTIONS (4)
  - Rash [Recovered/Resolved with Sequelae]
  - Hypersensitivity [Recovered/Resolved with Sequelae]
  - Pruritus generalised [Recovered/Resolved with Sequelae]
  - Lip swelling [Recovered/Resolved with Sequelae]
